FAERS Safety Report 9503447 (Version 3)
Quarter: 2013Q4

REPORT INFORMATION
  Report Type: Report from Study
  Country: US (occurrence: US)
  Receive Date: 20130906
  Receipt Date: 20131022
  Transmission Date: 20140711
  Serious: Yes (Other)
  Sender: FDA-Public Use
  Company Number: US-ROCHE-1259925

PATIENT
  Age: 57 Year
  Sex: Female

DRUGS (8)
  1. AVASTIN [Suspect]
     Indication: RETINAL VEIN OCCLUSION
     Dosage: LAST DOSE RECEIVED:26/JUL/2013
     Route: 050
     Dates: end: 20130726
  2. AVASTIN [Suspect]
     Indication: MACULAR OEDEMA
  3. LUCENTIS [Suspect]
     Indication: MACULAR OEDEMA
     Route: 050
     Dates: start: 20130823
  4. LUCENTIS [Suspect]
     Indication: RETINAL VEIN OCCLUSION
  5. AZOPT [Concomitant]
  6. BRIMONIDINE [Concomitant]
     Route: 065
  7. CIPROFLOXACIN [Concomitant]
  8. PRED FORTE [Concomitant]
     Dosage: IN LEFT EYE
     Route: 065

REACTIONS (5)
  - Macular oedema [Unknown]
  - Vitreous floaters [Unknown]
  - Photopsia [Unknown]
  - Eye pain [Unknown]
  - Visual acuity reduced [Unknown]
